FAERS Safety Report 23052423 (Version 1)
Quarter: 2023Q4

REPORT INFORMATION
  Report Type: Spontaneous
  Country: US (occurrence: US)
  Receive Date: 20231011
  Receipt Date: 20231011
  Transmission Date: 20240109
  Serious: Yes (Hospitalization, Other)
  Sender: FDA-Public Use
  Company Number: US-AUROBINDO-AUR-APL-2023-062462

PATIENT
  Age: 67 Year
  Sex: Male

DRUGS (4)
  1. ACETAMINOPHEN [Suspect]
     Active Substance: ACETAMINOPHEN
     Indication: Product used for unknown indication
     Dosage: 24.5 GRAM
     Route: 065
  2. KETAMINE HYDROCHLORIDE [Suspect]
     Active Substance: KETAMINE HYDROCHLORIDE
     Indication: Status epilepticus
     Dosage: 146 MILLIGRAM, EVERY HOUR
     Route: 065
  3. AMIFAMPRIDINE [Suspect]
     Active Substance: AMIFAMPRIDINE
     Indication: Suicide attempt
     Dosage: 100 MILLIGRAM
     Route: 065
  4. MIDAZOLAM [Suspect]
     Active Substance: MIDAZOLAM
     Indication: Drug therapy
     Dosage: 5 MILLIGRAM, EVERY HOUR
     Route: 065

REACTIONS (10)
  - Intentional overdose [Unknown]
  - Seizure [Recovered/Resolved]
  - Feeling jittery [Unknown]
  - Hyperhidrosis [Unknown]
  - Hypertension [Unknown]
  - Tremor [Unknown]
  - Tachycardia [Unknown]
  - Tachypnoea [Unknown]
  - Drug ineffective [Unknown]
  - Pulseless electrical activity [Unknown]
